FAERS Safety Report 19054471 (Version 1)
Quarter: 2021Q1

REPORT INFORMATION
  Report Type: Spontaneous
  Country: TW (occurrence: TW)
  Receive Date: 20210325
  Receipt Date: 20210325
  Transmission Date: 20210420
  Serious: Yes (Hospitalization)
  Sender: FDA-Public Use
  Company Number: NVSC2021TW057964

PATIENT
  Age: 69 Year
  Sex: Female
  Weight: 44.3 kg

DRUGS (4)
  1. TEGRETOL [Suspect]
     Active Substance: CARBAMAZEPINE
     Dosage: 200 MG, Q8H
     Route: 048
     Dates: start: 20180528, end: 20180622
  2. LAMOTRIGINE. [Concomitant]
     Active Substance: LAMOTRIGINE
     Dosage: 50 MG, Q8H
     Route: 048
     Dates: start: 20180528, end: 20180622
  3. TEGRETOL [Suspect]
     Active Substance: CARBAMAZEPINE
     Indication: TRIGEMINAL NEURALGIA
     Dosage: 200 MG, BID
     Route: 048
     Dates: start: 20180514, end: 20180528
  4. LAMOTRIGINE. [Concomitant]
     Active Substance: LAMOTRIGINE
     Indication: TRIGEMINAL NEURALGIA
     Dosage: 50 MG, BID
     Route: 048
     Dates: start: 20180507, end: 20180528

REACTIONS (10)
  - Pyrexia [Recovering/Resolving]
  - Hypersensitivity [Recovering/Resolving]
  - Lip swelling [Recovering/Resolving]
  - Stevens-Johnson syndrome [Recovering/Resolving]
  - Decreased appetite [Recovering/Resolving]
  - Dysarthria [Recovering/Resolving]
  - Rash erythematous [Recovering/Resolving]
  - Odynophagia [Recovering/Resolving]
  - Mouth ulceration [Recovering/Resolving]
  - Inflammation [Recovering/Resolving]

NARRATIVE: CASE EVENT DATE: 20180620
